FAERS Safety Report 9018354 (Version 2)
Quarter: 2013Q1

REPORT INFORMATION
  Report Type: Spontaneous
  Country: JP (occurrence: JP)
  Receive Date: 20130118
  Receipt Date: 20130201
  Transmission Date: 20140127
  Serious: Yes (Other)
  Sender: FDA-Public Use
  Company Number: JP-009507513-1212JPN000431

PATIENT
  Age: 65 Year
  Sex: Female

DRUGS (5)
  1. REBETOL [Suspect]
     Indication: HEPATITIS C
     Dosage: 200MG IN THE MORNING+400MG IN THE EVENING
     Route: 048
     Dates: start: 20101108, end: 20120104
  2. FERON [Suspect]
     Indication: HEPATITIS C
     Dosage: 6(MILLION-BILLION UNIT) DAILY
     Route: 040
     Dates: start: 20101108, end: 20120104
  3. BLOPRESS [Concomitant]
     Indication: HYPERTENSION
     Dosage: 8 MG, QD
     Route: 048
  4. NORVASC [Concomitant]
     Indication: HYPERTENSION
     Dosage: 5 MG, QD
     Route: 048
  5. URSODIOL [Concomitant]
     Indication: HEPATITIS C
     Dosage: UNK, FORMULATION: POR
     Route: 048

REACTIONS (1)
  - Basedow^s disease [Recovering/Resolving]
